FAERS Safety Report 7950252-6 (Version None)
Quarter: 2011Q4

REPORT INFORMATION
  Report Type: 
  Country: None (occurrence: None)
  Receive Date: 20111130
  Receipt Date: 20111121
  Transmission Date: 20120403
  Serious: Yes (Other)
  Sender: FDA-Public Use
  Company Number: US-BAYER-2011-009543

PATIENT
  Age: 29 Year
  Sex: Female
  Weight: 119.27 kg

DRUGS (9)
  1. YAZ [Suspect]
     Indication: CONTRACEPTION
     Dosage: UNK
     Dates: start: 20090801, end: 20091001
  2. SULFATRIM-DS [Concomitant]
     Dosage: UNK
     Route: 048
     Dates: start: 20090902
  3. HYDROCODONE BITARTRATE AND ACETAMINOPHEN [Concomitant]
     Indication: PAIN
     Dosage: UNK UNK, PRN
     Dates: start: 20090902
  4. CEPHALEXIN [Concomitant]
     Dosage: 500 MG, UNK
     Route: 048
     Dates: start: 20090824
  5. ANAPROX DS [Concomitant]
     Dosage: UNK
     Route: 048
     Dates: start: 20090822
  6. PROZAC [Concomitant]
     Dosage: 20 MG, QD
     Route: 048
     Dates: start: 20090818
  7. OXYCODONE HCL AND ACETAMINOPHEN [Concomitant]
     Dosage: UNK UNK, PRN
     Route: 048
     Dates: start: 20090824
  8. FOCALIN [Concomitant]
     Dosage: 10 MG, BID
     Route: 048
     Dates: start: 20091001
  9. CLONAZEPAM [Concomitant]
     Dosage: 3 MG, QD
     Route: 048
     Dates: start: 20091030

REACTIONS (4)
  - CHOLELITHIASIS [None]
  - GALLBLADDER DISORDER [None]
  - PAIN [None]
  - EMOTIONAL DISTRESS [None]
